FAERS Safety Report 6602373-8 (Version None)
Quarter: 2010Q1

REPORT INFORMATION
  Report Type: 
  Country: None (occurrence: None)
  Receive Date: 20100225
  Receipt Date: 20100223
  Transmission Date: 20100710
  Serious: Yes (Hospitalization)
  Sender: FDA-Public Use
  Company Number: A0846375A

PATIENT
  Age: 66 Year
  Sex: Male

DRUGS (8)
  1. AVANDIA [Suspect]
     Indication: DIABETES MELLITUS
     Dosage: 8MG PER DAY
     Route: 048
     Dates: start: 20020101, end: 20040101
  2. LIPITOR [Concomitant]
  3. CHLOROTHIAZIDE [Concomitant]
  4. LOTENSIN [Concomitant]
  5. LANTUS [Concomitant]
  6. AMARYL [Concomitant]
  7. HYDROCORTISONE [Concomitant]
  8. DARVOCET [Concomitant]

REACTIONS (2)
  - CARDIAC FAILURE CONGESTIVE [None]
  - IMPLANTABLE DEFIBRILLATOR INSERTION [None]
